FAERS Safety Report 6964065-5 (Version None)
Quarter: 2010Q3

REPORT INFORMATION
  Report Type: 
  Country: None (occurrence: None)
  Receive Date: 20100902
  Receipt Date: 20100902
  Transmission Date: 20110219
  Serious: No
  Sender: FDA-Public Use
  Company Number: None

PATIENT
  Age: 24 Year
  Sex: Male
  Weight: 77.1115 kg

DRUGS (2)
  1. CELLCEPT [Suspect]
     Indication: RENAL TRANSPLANT
     Dosage: 500 MG IN MORNING
  2. MYCOPHENOLATE MOFETIL [Suspect]
     Dosage: 500 M AT NITE

REACTIONS (2)
  - HIP FRACTURE [None]
  - PARATHYROID DISORDER [None]
